FAERS Safety Report 19598564 (Version 1)
Quarter: 2021Q3

REPORT INFORMATION
  Report Type: Spontaneous
  Country: US (occurrence: US)
  Receive Date: 20210723
  Receipt Date: 20210723
  Transmission Date: 20211014
  Serious: No
  Sender: FDA-Public Use
  Company Number: US-APOTEX-2021AP010039

PATIENT
  Sex: Female
  Weight: 42.63 kg

DRUGS (2)
  1. TOPROL XL [Concomitant]
     Active Substance: METOPROLOL SUCCINATE
     Indication: HEART RATE
     Dosage: 25 MILLIGRAM
     Route: 065
     Dates: start: 2018
  2. RISEDRONATE [Suspect]
     Active Substance: RISEDRONATE SODIUM
     Indication: PRODUCT USED FOR UNKNOWN INDICATION
     Dosage: UNK
     Route: 065

REACTIONS (3)
  - Diarrhoea [Unknown]
  - Dehydration [Unknown]
  - Heart rate increased [Unknown]
